FAERS Safety Report 16077324 (Version 1)
Quarter: 2019Q1

REPORT INFORMATION
  Report Type: Spontaneous
  Country: CA (occurrence: CA)
  Receive Date: 20190315
  Receipt Date: 20190315
  Transmission Date: 20190418
  Serious: Yes (Hospitalization, Other)
  Sender: FDA-Public Use
  Company Number: CA-JAZZ-2019-CA-003457

PATIENT
  Age: 11 Year
  Sex: Male
  Weight: 74 kg

DRUGS (1)
  1. ASPARAGINASE [Suspect]
     Active Substance: ASPARAGINASE
     Indication: T-CELL TYPE ACUTE LEUKAEMIA
     Dosage: 4500 UNITS, ONCE
     Route: 042

REACTIONS (6)
  - Lipase increased [Unknown]
  - Pancreatitis necrotising [Unknown]
  - Pancreatectomy [Unknown]
  - Pancreatitis acute [Unknown]
  - Pancreas infection [Unknown]
  - Cyst drainage [Unknown]
